FAERS Safety Report 8930385 (Version 2)
Quarter: 2012Q4

REPORT INFORMATION
  Report Type: 
  Country: JP (occurrence: JP)
  Receive Date: 20121128
  Receipt Date: 20121212
  Transmission Date: 20130627
  Serious: Yes (Other)
  Sender: FDA-Public Use
  Company Number: JP-GLAXOSMITHKLINE-B0846839A

PATIENT
  Age: 84 Year
  Sex: Female

DRUGS (4)
  1. ARIXTRA [Suspect]
     Indication: DEEP VEIN THROMBOSIS
     Dosage: 5MG Per day
     Route: 058
     Dates: start: 20121101, end: 20121103
  2. WARFARIN [Suspect]
     Indication: PRODUCT USED FOR UNKNOWN INDICATION
     Dosage: 2MG Per day
     Route: 048
     Dates: start: 20121101, end: 20121101
  3. WARFARIN [Suspect]
     Indication: PRODUCT USED FOR UNKNOWN INDICATION
     Dosage: 1.5MG Per day
     Route: 048
     Dates: start: 20121102, end: 20121103
  4. NON STEROIDAL ANTI-INFLAMMATORY DRUG [Concomitant]
     Route: 065

REACTIONS (2)
  - Gastric ulcer haemorrhage [Recovering/Resolving]
  - Haematemesis [Unknown]
